FAERS Safety Report 20451747 (Version 6)
Quarter: 2022Q3

REPORT INFORMATION
  Report Type: Report from Study
  Country: BR (occurrence: BR)
  Receive Date: 20220209
  Receipt Date: 20220708
  Transmission Date: 20221026
  Serious: Yes (Death, Hospitalization)
  Sender: FDA-Public Use
  Company Number: BR-JNJFOC-20211235671

PATIENT
  Age: 66 Year
  Sex: Female
  Weight: 70 kg

DRUGS (21)
  1. AMIVANTAMAB [Suspect]
     Active Substance: AMIVANTAMAB
     Indication: Non-small cell lung cancer metastatic
     Route: 042
     Dates: start: 20211206, end: 20211207
  2. ATENOLOL [Concomitant]
     Active Substance: ATENOLOL
     Indication: Hypertension
     Route: 048
     Dates: start: 20110101
  3. LOSARTAN [Concomitant]
     Active Substance: LOSARTAN
     Indication: Hypertension
     Route: 048
     Dates: start: 20110101
  4. ANLODIPINE [Concomitant]
     Indication: Hypertension
     Route: 048
     Dates: start: 20110101
  5. LEVOTHYROXINE [Concomitant]
     Active Substance: LEVOTHYROXINE
     Indication: Hypothyroidism
     Route: 048
     Dates: start: 20170101
  6. BETAHISTINE [Concomitant]
     Active Substance: BETAHISTINE
     Indication: Labyrinthitis
     Route: 048
     Dates: start: 20180101
  7. METFORMIN [Concomitant]
     Active Substance: METFORMIN HYDROCHLORIDE
     Indication: Type 2 diabetes mellitus
     Route: 048
     Dates: start: 20110101
  8. OMEPRAZOLE [Concomitant]
     Active Substance: OMEPRAZOLE
     Indication: Gastrooesophageal reflux prophylaxis
     Route: 048
     Dates: start: 20110101
  9. SERTRALINE [Concomitant]
     Active Substance: SERTRALINE HYDROCHLORIDE
     Indication: Depression
     Dosage: ROUTE REPORTED AS OPHTHALMIC
     Route: 047
     Dates: start: 20170101
  10. MORPHINE [Concomitant]
     Active Substance: MORPHINE
     Indication: Dyspnoea
     Route: 048
     Dates: start: 20211211, end: 20211211
  11. MORPHINE [Concomitant]
     Active Substance: MORPHINE
     Indication: Acute myocardial infarction
     Route: 042
     Dates: start: 20220115, end: 20220117
  12. MORPHINE [Concomitant]
     Active Substance: MORPHINE
     Indication: Cancer pain
  13. DIPHENHYDRAMINE [Concomitant]
     Active Substance: DIPHENHYDRAMINE
     Route: 042
     Dates: start: 20211206, end: 20211206
  14. HYDROCORTISONE [Concomitant]
     Active Substance: HYDROCORTISONE
     Route: 042
     Dates: start: 20211206, end: 20211206
  15. ASPIRIN [Concomitant]
     Active Substance: ASPIRIN
     Indication: Acute myocardial infarction
     Route: 048
     Dates: start: 20211211, end: 20211211
  16. CLOPIDOGREL [Concomitant]
     Active Substance: CLOPIDOGREL BISULFATE
     Indication: Acute myocardial infarction
     Route: 048
     Dates: start: 20211211, end: 20211211
  17. DIPYRONE [Concomitant]
     Active Substance: DIPYRONE
     Indication: Cancer pain
     Route: 042
     Dates: start: 20211206, end: 20211207
  18. DIPYRONE [Concomitant]
     Active Substance: DIPYRONE
     Route: 048
     Dates: start: 20211025, end: 20211130
  19. DIPYRONE [Concomitant]
     Active Substance: DIPYRONE
     Route: 048
     Dates: start: 20211117, end: 20211130
  20. DEXAMETHASONE [Concomitant]
     Active Substance: DEXAMETHASONE
     Indication: Cancer pain
     Route: 048
     Dates: start: 20211201
  21. PREGABALIN [Concomitant]
     Active Substance: PREGABALIN
     Indication: Cancer pain
     Route: 048
     Dates: start: 20211201

REACTIONS (4)
  - Pulmonary embolism [Not Recovered/Not Resolved]
  - Cancer pain [Recovered/Resolved]
  - Muscle rupture [Recovered/Resolved]
  - Pericardial effusion [Fatal]

NARRATIVE: CASE EVENT DATE: 20211212
